FAERS Safety Report 4458879-3 (Version None)
Quarter: 2004Q3

REPORT INFORMATION
  Report Type: 
  Country: None (occurrence: None)
  Receive Date: 20040921
  Receipt Date: 20040921
  Transmission Date: 20050211
  Serious: No
  Sender: FDA-Public Use
  Company Number: None

PATIENT
  Age: 61 Year
  Sex: Male
  Weight: 67 kg

DRUGS (8)
  1. ANTITHYMOCYTE GLOBULIN [Suspect]
     Indication: RENAL TRANSPLANT
     Dosage: 100MG X1 IV
     Route: 042
     Dates: start: 20040510
  2. CEFAZOLIN [Concomitant]
  3. MYCOPHENOLATE [Concomitant]
  4. PREDNISONE [Concomitant]
  5. BACTRIM [Concomitant]
  6. VALGANCICLOVIR [Concomitant]
  7. HYDROMORPHONE HCL [Concomitant]
  8. RANITIDINE [Concomitant]

REACTIONS (2)
  - HEART RATE DECREASED [None]
  - HYPOTENSION [None]
